FAERS Safety Report 5599270-6 (Version None)
Quarter: 2008Q1

REPORT INFORMATION
  Report Type: 
  Country: None (occurrence: None)
  Receive Date: 20080117
  Receipt Date: 20080102
  Transmission Date: 20080703
  Serious: Yes (Hospitalization)
  Sender: FDA-Public Use
  Company Number: 2008S1000000

PATIENT
  Age: 71 Year
  Sex: Male

DRUGS (2)
  1. AZASAN [Suspect]
     Indication: STEROID THERAPY
     Dosage: 100 MG; QD;
  2. PREDNISONE TAB [Concomitant]

REACTIONS (13)
  - BLOOD ALBUMIN DECREASED [None]
  - CONDITION AGGRAVATED [None]
  - CROHN'S DISEASE [None]
  - CRYPTOGENIC ORGANISING PNEUMONIA [None]
  - DRUG INEFFECTIVE [None]
  - DYSPNOEA [None]
  - INFLAMMATION [None]
  - LENTICULAR OPACITIES [None]
  - LEUKOCYTOSIS [None]
  - NECROSIS [None]
  - NO THERAPEUTIC RESPONSE [None]
  - VASCULITIS [None]
  - WEIGHT DECREASED [None]
